FAERS Safety Report 16321184 (Version 10)
Quarter: 2021Q3

REPORT INFORMATION
  Report Type: Spontaneous
  Country: US (occurrence: US)
  Receive Date: 20190516
  Receipt Date: 20210806
  Transmission Date: 20211014
  Serious: Yes (Hospitalization)
  Sender: FDA-Public Use
  Company Number: US-PFIZER INC-2019203263

PATIENT
  Age: 66 Year
  Sex: Male
  Weight: 83.46 kg

DRUGS (1)
  1. VIAGRA [Suspect]
     Active Substance: SILDENAFIL CITRATE
     Indication: ERECTILE DYSFUNCTION
     Dosage: 100 MG
     Dates: start: 20170312

REACTIONS (11)
  - Drug ineffective [Unknown]
  - Headache [Unknown]
  - Musculoskeletal disorder [Unknown]
  - Back disorder [Unknown]
  - Confusional state [Unknown]
  - Somnolence [Unknown]
  - Clavicle fracture [Recovered/Resolved]
  - Fall [Recovered/Resolved]
  - Bedridden [Unknown]
  - Emotional disorder [Unknown]
  - Cardiac disorder [Unknown]
